FAERS Safety Report 13466435 (Version 1)
Quarter: 2017Q2

REPORT INFORMATION
  Report Type: Spontaneous
  Country: AU (occurrence: AU)
  Receive Date: 20170421
  Receipt Date: 20170421
  Transmission Date: 20170830
  Serious: Yes (Hospitalization)
  Sender: FDA-Public Use
  Company Number: AU-STRIDES ARCOLAB LIMITED-2017SP006616

PATIENT

DRUGS (4)
  1. IBUPROFEN. [Suspect]
     Active Substance: IBUPROFEN
     Indication: PYREXIA
     Dosage: UNK (UP TO THREE DAILY)
     Route: 065
  2. PARACETAMOL/CODEINE [Suspect]
     Active Substance: ACETAMINOPHEN\CODEINE PHOSPHATE
     Indication: PYREXIA
     Dosage: UNK (ONE DOSE)
     Route: 065
  3. PARACETAMOL/CODEINE [Suspect]
     Active Substance: ACETAMINOPHEN\CODEINE PHOSPHATE
     Indication: INFLUENZA LIKE ILLNESS
  4. AMOXICILLIN. [Suspect]
     Active Substance: AMOXICILLIN
     Indication: ANTIBIOTIC PROPHYLAXIS
     Dosage: UNK
     Route: 042

REACTIONS (11)
  - Blister [Recovered/Resolved]
  - Histiocytosis haematophagic [Recovered/Resolved]
  - Stevens-Johnson syndrome [Recovered/Resolved]
  - Skin exfoliation [Recovered/Resolved]
  - Toxic epidermal necrolysis [Recovered/Resolved]
  - Mucocutaneous rash [Recovered/Resolved]
  - Respiratory failure [Recovered/Resolved]
  - Shock [Recovered/Resolved]
  - Liver function test abnormal [Recovered/Resolved]
  - Hyperferritinaemia [Recovered/Resolved]
  - Pancytopenia [Recovered/Resolved]
